FAERS Safety Report 16148892 (Version 2)
Quarter: 2019Q2

REPORT INFORMATION
  Report Type: Spontaneous
  Country: FR (occurrence: FR)
  Receive Date: 20190402
  Receipt Date: 20190528
  Transmission Date: 20190711
  Serious: Yes (Hospitalization)
  Sender: FDA-Public Use
  Company Number: FR-B.I. PHARMACEUTICALS,INC./RIDGEFIELD-2019-BI-015025

PATIENT
  Age: 80 Year
  Sex: Female

DRUGS (2)
  1. PRITOR (TELMISARTAN) [Suspect]
     Active Substance: TELMISARTAN
     Indication: PRODUCT USED FOR UNKNOWN INDICATION
     Route: 065
     Dates: start: 20190302, end: 201903
  2. SOTALEX [Concomitant]
     Active Substance: SOTALOL
     Indication: PRODUCT USED FOR UNKNOWN INDICATION
     Route: 065
     Dates: start: 2019, end: 20190308

REACTIONS (3)
  - Hypertension [Unknown]
  - Diarrhoea [Recovering/Resolving]
  - Urinary retention [Recovering/Resolving]

NARRATIVE: CASE EVENT DATE: 20190305
